FAERS Safety Report 5367421-4 (Version None)
Quarter: 2007Q2

REPORT INFORMATION
  Report Type: 
  Country: None (occurrence: None)
  Receive Date: 20070622
  Receipt Date: 20061214
  Transmission Date: 20071010
  Serious: No
  Sender: FDA-Public Use
  Company Number: US-ASTRAZENECA-2006UW20920

PATIENT
  Age: 58 Year
  Sex: Female
  Weight: 77.1 kg

DRUGS (4)
  1. PULMICORT [Suspect]
     Indication: ASTHMA
     Route: 055
     Dates: start: 20060926
  2. NASONEX [Concomitant]
     Indication: ASTHMA
     Dosage: 2 SPRAYS
     Route: 045
     Dates: start: 20051215
  3. AUGMENTIN '125' [Concomitant]
     Indication: SINUSITIS
     Route: 048
     Dates: start: 20060919, end: 20061009
  4. ALLEGRA D 24 HOUR [Concomitant]
     Indication: ASTHMA
     Route: 048
     Dates: start: 20060816

REACTIONS (2)
  - PHARYNGOLARYNGEAL PAIN [None]
  - THROAT IRRITATION [None]
